FAERS Safety Report 8254766-3 (Version None)
Quarter: 2012Q2

REPORT INFORMATION
  Report Type: 
  Country: None (occurrence: None)
  Receive Date: 20120403
  Receipt Date: 20120326
  Transmission Date: 20120825
  Serious: Yes (Hospitalization)
  Sender: FDA-Public Use
  Company Number: PHHY2012DE004439

PATIENT
  Sex: Female

DRUGS (3)
  1. GLEEVEC [Suspect]
     Indication: GASTROINTESTINAL STROMAL TUMOUR
     Dosage: 400 MG, DAILY
     Route: 048
     Dates: start: 20100528
  2. RAMIPRIL [Concomitant]
     Dosage: 5 MG, DAILY
     Route: 048
  3. METFORMIN HCL [Concomitant]
     Dosage: 2 DF, BID
     Route: 048

REACTIONS (1)
  - HYPERTHYROIDISM [None]
